FAERS Safety Report 5676835-4 (Version None)
Quarter: 2008Q1

REPORT INFORMATION
  Report Type: 
  Country: None (occurrence: None)
  Receive Date: 20080324
  Receipt Date: 20080221
  Transmission Date: 20080703
  Serious: No
  Sender: FDA-Public Use
  Company Number: US-BAYER-200815177NA

PATIENT
  Age: 25 Year
  Sex: Female
  Weight: 56 kg

DRUGS (2)
  1. YASMIN [Suspect]
     Indication: CONTRACEPTION
     Route: 048
  2. SYNTHROID [Concomitant]
     Dates: start: 19930101

REACTIONS (2)
  - METRORRHAGIA [None]
  - VOMITING [None]
